FAERS Safety Report 4335830-8 (Version None)
Quarter: 2004Q2

REPORT INFORMATION
  Report Type: 
  Country: None (occurrence: None)
  Receive Date: 20040405
  Receipt Date: 20040323
  Transmission Date: 20050107
  Serious: No
  Sender: FDA-Public Use
  Company Number: 04P-056-0254512-00

PATIENT
  Age: 26 Year
  Sex: Male

DRUGS (2)
  1. DEPAKENE [Suspect]
     Dosage: 500 MG, 1 IN 1 D, ORAL
     Route: 048
     Dates: start: 20031001
  2. SPASFON [Concomitant]

REACTIONS (2)
  - ABDOMINAL PAIN [None]
  - EPILEPSY [None]
